FAERS Safety Report 18480816 (Version 4)
Quarter: 2020Q4

REPORT INFORMATION
  Report Type: Spontaneous
  Country: US (occurrence: US)
  Receive Date: 20201109
  Receipt Date: 20201125
  Transmission Date: 20210114
  Serious: No
  Sender: FDA-Public Use
  Company Number: US-PFIZER INC-2020437469

PATIENT
  Age: 77 Year
  Sex: Female

DRUGS (1)
  1. PREMARIN [Suspect]
     Active Substance: ESTROGENS, CONJUGATED
     Dosage: 0.5 GM, 2X/WEEK (QHS (EVERY NIGHT AT BEDTIME))
     Route: 067

REACTIONS (3)
  - Infection [Unknown]
  - Urinary tract infection [Unknown]
  - Product prescribing error [Unknown]
